FAERS Safety Report 24757275 (Version 1)
Quarter: 2024Q4

REPORT INFORMATION
  Report Type: Spontaneous
  Country: US (occurrence: US)
  Receive Date: 20241220
  Receipt Date: 20241220
  Transmission Date: 20250114
  Serious: No
  Sender: ROCHE
  Company Number: US-ROCHE-10000159626

PATIENT

DRUGS (1)
  1. VABYSMO [Suspect]
     Active Substance: FARICIMAB-SVOA
     Indication: Diabetic retinopathy
     Dosage: 120MG/1ML?STRENGTH: 6MG
     Route: 065

REACTIONS (5)
  - Product container issue [Unknown]
  - Off label use [Unknown]
  - Drug delivery system malfunction [Unknown]
  - Wrong technique in device usage process [Unknown]
  - No adverse event [Unknown]

NARRATIVE: CASE EVENT DATE: 20241216
